FAERS Safety Report 10244898 (Version 1)
Quarter: 2014Q2

REPORT INFORMATION
  Report Type: Spontaneous
  Country: US (occurrence: US)
  Receive Date: 20140618
  Receipt Date: 20140618
  Transmission Date: 20141212
  Serious: No
  Sender: FDA-Public Use
  Company Number: US-GALDERMA-US14001511

PATIENT
  Age: 55 Year
  Sex: Female

DRUGS (8)
  1. MIRVASO (BRIMONIDINE) TOPICAL GEL, 0.33% [Suspect]
     Indication: ROSACEA
     Dosage: 0.33%
     Route: 061
     Dates: start: 20140414, end: 20140417
  2. JOHNSONS BABY WASH [Concomitant]
     Indication: THERAPEUTIC SKIN CARE TOPICAL
     Route: 061
     Dates: start: 2009
  3. JOHNSONS BABY BED TIME LOTION [Concomitant]
     Indication: DRY SKIN PROPHYLAXIS
     Route: 061
     Dates: start: 2009
  4. SYNTHROID [Concomitant]
     Indication: AUTOIMMUNE THYROIDITIS
     Dosage: 88 MCG
     Route: 048
     Dates: start: 2009
  5. CALCIUM 600 + D [Concomitant]
     Indication: OSTEOPENIA
     Route: 048
     Dates: start: 2009
  6. VITAMIN D [Concomitant]
     Indication: OSTEOPENIA
     Dosage: 2000 IU
     Route: 048
  7. OMEPRAZOLE [Concomitant]
     Indication: GASTROOESOPHAGEAL REFLUX DISEASE
     Dosage: 20 MG
     Route: 048
  8. BIOTIN [Concomitant]
     Indication: SUPPLEMENTATION THERAPY
     Dosage: 2500 MG
     Route: 048

REACTIONS (6)
  - Condition aggravated [Recovering/Resolving]
  - Erythema [Recovering/Resolving]
  - Flushing [Recovered/Resolved]
  - Skin burning sensation [Recovered/Resolved]
  - Off label use [Recovered/Resolved]
  - Drug effect decreased [Recovered/Resolved]
